FAERS Safety Report 24084044 (Version 1)
Quarter: 2024Q3

REPORT INFORMATION
  Report Type: Spontaneous
  Country: AU (occurrence: AU)
  Receive Date: 20240712
  Receipt Date: 20240712
  Transmission Date: 20241017
  Serious: Yes (Hospitalization, Disabling, Other)
  Sender: ASTELLAS
  Company Number: AU-ASTELLAS-2024US019419

PATIENT
  Age: 63 Year
  Sex: Female

DRUGS (42)
  1. ERLOTINIB [Suspect]
     Active Substance: ERLOTINIB
     Indication: Anxiety
     Dosage: UNK UNK, UNKNOWN FREQ.
     Route: 065
  2. ERLOTINIB [Suspect]
     Active Substance: ERLOTINIB
     Indication: Back pain
  3. ERLOTINIB [Suspect]
     Active Substance: ERLOTINIB
     Indication: Chronic obstructive pulmonary disease
  4. ERLOTINIB [Suspect]
     Active Substance: ERLOTINIB
     Indication: Diarrhoea
  5. ERLOTINIB [Suspect]
     Active Substance: ERLOTINIB
     Indication: Hepatic cancer
  6. ERLOTINIB [Suspect]
     Active Substance: ERLOTINIB
     Indication: Hepatic encephalopathy
  7. ERLOTINIB [Suspect]
     Active Substance: ERLOTINIB
     Indication: Hyperlipidaemia
  8. ERLOTINIB [Suspect]
     Active Substance: ERLOTINIB
     Indication: Hypertension
  9. ERLOTINIB [Suspect]
     Active Substance: ERLOTINIB
     Indication: Insomnia
  10. ERLOTINIB [Suspect]
     Active Substance: ERLOTINIB
     Indication: Medical diet
  11. ERLOTINIB [Suspect]
     Active Substance: ERLOTINIB
     Indication: Nasal congestion
  12. ERLOTINIB [Suspect]
     Active Substance: ERLOTINIB
     Indication: Nausea
  13. ERLOTINIB [Suspect]
     Active Substance: ERLOTINIB
     Indication: Osteoporosis
  14. ERLOTINIB [Suspect]
     Active Substance: ERLOTINIB
     Indication: Portal hypertension
  15. ERLOTINIB [Suspect]
     Active Substance: ERLOTINIB
     Indication: Respiratory tract infection
  16. ERLOTINIB [Suspect]
     Active Substance: ERLOTINIB
     Indication: Thrombosis prophylaxis
  17. ERLOTINIB [Suspect]
     Active Substance: ERLOTINIB
     Indication: Type 2 diabetes mellitus
  18. ERLOTINIB [Suspect]
     Active Substance: ERLOTINIB
     Indication: Vitamin supplementation
  19. ERLOTINIB [Suspect]
     Active Substance: ERLOTINIB
     Indication: Wheezing
  20. SORAFENIB [Suspect]
     Active Substance: SORAFENIB
     Indication: Anal erythema
     Dosage: UNK UNK, UNKNOWN FREQ.
     Route: 065
  21. SORAFENIB [Suspect]
     Active Substance: SORAFENIB
     Indication: Anxiety
  22. SORAFENIB [Suspect]
     Active Substance: SORAFENIB
     Indication: Back pain
  23. SORAFENIB [Suspect]
     Active Substance: SORAFENIB
     Indication: Chronic obstructive pulmonary disease
  24. SORAFENIB [Suspect]
     Active Substance: SORAFENIB
     Indication: Diarrhoea
  25. SORAFENIB [Suspect]
     Active Substance: SORAFENIB
     Indication: Hepatic cancer
  26. SORAFENIB [Suspect]
     Active Substance: SORAFENIB
     Indication: Hepatic encephalopathy
  27. SORAFENIB [Suspect]
     Active Substance: SORAFENIB
     Indication: Hyperlipidaemia
  28. SORAFENIB [Suspect]
     Active Substance: SORAFENIB
     Indication: Hypertension
  29. SORAFENIB [Suspect]
     Active Substance: SORAFENIB
     Indication: Insomnia
  30. SORAFENIB [Suspect]
     Active Substance: SORAFENIB
     Indication: Medical diet
  31. SORAFENIB [Suspect]
     Active Substance: SORAFENIB
     Indication: Nasal congestion
  32. SORAFENIB [Suspect]
     Active Substance: SORAFENIB
     Indication: Nausea
  33. SORAFENIB [Suspect]
     Active Substance: SORAFENIB
     Indication: Osteoporosis
  34. SORAFENIB [Suspect]
     Active Substance: SORAFENIB
     Indication: Portal hypertension
  35. SORAFENIB [Suspect]
     Active Substance: SORAFENIB
     Indication: Respiratory tract infection
  36. SORAFENIB [Suspect]
     Active Substance: SORAFENIB
     Indication: Thrombosis prophylaxis
  37. SORAFENIB [Suspect]
     Active Substance: SORAFENIB
     Indication: Type 2 diabetes mellitus
  38. SORAFENIB [Suspect]
     Active Substance: SORAFENIB
     Indication: Vitamin supplementation
  39. SORAFENIB [Suspect]
     Active Substance: SORAFENIB
     Indication: Wheezing
  40. VYTORIN [Concomitant]
     Active Substance: EZETIMIBE\SIMVASTATIN
     Indication: Product used for unknown indication
     Dosage: UNK UNK, UNKNOWN FREQ.
     Route: 065
  41. OXYCODONE HYDROCHLORIDE [Concomitant]
     Active Substance: OXYCODONE HYDROCHLORIDE
     Indication: Product used for unknown indication
     Dosage: UNK UNK, UNKNOWN FREQ.
     Route: 065
  42. IPRATROPIUM BROMIDE [Concomitant]
     Active Substance: IPRATROPIUM BROMIDE\IPRATROPIUM BROMIDE ANHYDROUS
     Indication: Product used for unknown indication
     Dosage: UNK UNK, UNKNOWN FREQ.
     Route: 065

REACTIONS (6)
  - Hypoxia [Unknown]
  - Hepatic encephalopathy [Unknown]
  - Wheezing [Unknown]
  - Confusional state [Unknown]
  - Productive cough [Unknown]
  - Respiratory tract infection [Unknown]

NARRATIVE: CASE EVENT DATE: 20100318
